FAERS Safety Report 15907434 (Version 1)
Quarter: 2019Q1

REPORT INFORMATION
  Report Type: Spontaneous
  Country: DE (occurrence: DE)
  Receive Date: 20190204
  Receipt Date: 20190204
  Transmission Date: 20190417
  Serious: Yes (Hospitalization, Other)
  Sender: FDA-Public Use
  Company Number: DE-B.I. PHARMACEUTICALS,INC./RIDGEFIELD-2019-12-000372

PATIENT
  Sex: Male
  Weight: 80 kg

DRUGS (11)
  1. PRADAXA [Suspect]
     Active Substance: DABIGATRAN ETEXILATE MESYLATE
     Indication: PRODUCT USED FOR UNKNOWN INDICATION
     Route: 065
     Dates: start: 20160304
  2. PANTOPRAZOL [Concomitant]
     Active Substance: PANTOPRAZOLE SODIUM
     Indication: PRODUCT USED FOR UNKNOWN INDICATION
     Dosage: ADDITIONAL INFO: STOMACH PROTECTION
     Route: 065
     Dates: start: 20151017
  3. CELLCEPT [Suspect]
     Active Substance: MYCOPHENOLATE MOFETIL\MYCOPHENOLATE MOFETIL HYDROCHLORIDE
     Indication: PEMPHIGUS
     Route: 048
  4. CELLCEPT [Suspect]
     Active Substance: MYCOPHENOLATE MOFETIL\MYCOPHENOLATE MOFETIL HYDROCHLORIDE
     Route: 048
     Dates: start: 201804
  5. CELLCEPT [Suspect]
     Active Substance: MYCOPHENOLATE MOFETIL\MYCOPHENOLATE MOFETIL HYDROCHLORIDE
     Route: 048
     Dates: start: 201511
  6. CELLCEPT [Suspect]
     Active Substance: MYCOPHENOLATE MOFETIL\MYCOPHENOLATE MOFETIL HYDROCHLORIDE
     Route: 048
  7. IDEOS [Concomitant]
     Active Substance: CALCIUM CARBONATE\CHOLECALCIFEROL
     Indication: PRODUCT USED FOR UNKNOWN INDICATION
     Dosage: DOSE: 500 MG/400 IU  ADDITIONAL INFO: BONE PROTECTION
     Route: 065
     Dates: start: 20151017
  8. CELLCEPT [Suspect]
     Active Substance: MYCOPHENOLATE MOFETIL\MYCOPHENOLATE MOFETIL HYDROCHLORIDE
     Route: 048
     Dates: start: 20151017
  9. CELLCEPT [Suspect]
     Active Substance: MYCOPHENOLATE MOFETIL\MYCOPHENOLATE MOFETIL HYDROCHLORIDE
     Route: 048
  10. DECORTIN H [Concomitant]
     Active Substance: PREDNISOLONE
     Indication: PEMPHIGUS
     Route: 065
     Dates: start: 20160727
  11. DECORTIN H [Concomitant]
     Active Substance: PREDNISOLONE
     Route: 065
     Dates: start: 20151017

REACTIONS (20)
  - Blood urine present [Not Recovered/Not Resolved]
  - Mitral valve incompetence [Not Recovered/Not Resolved]
  - Micturition urgency [Not Recovered/Not Resolved]
  - Hypertension [Unknown]
  - Urinary tract infection [Unknown]
  - Off label use [Unknown]
  - Mitral valve repair [Unknown]
  - Pulmonary embolism [Unknown]
  - Nasopharyngitis [Unknown]
  - Myalgia [Not Recovered/Not Resolved]
  - Intentional product use issue [Unknown]
  - Skin papilloma [Unknown]
  - Thrombosis [Unknown]
  - Atrial fibrillation [Recovered/Resolved]
  - Tremor [Not Recovered/Not Resolved]
  - Bone pain [Not Recovered/Not Resolved]
  - Hepatic steatosis [Unknown]
  - Cataract [Not Recovered/Not Resolved]
  - Cystitis [Unknown]
  - Alanine aminotransferase increased [Unknown]

NARRATIVE: CASE EVENT DATE: 20160307
